FAERS Safety Report 18845384 (Version 1)
Quarter: 2021Q1

REPORT INFORMATION
  Report Type: Spontaneous
  Country: PS (occurrence: PS)
  Receive Date: 20210204
  Receipt Date: 20210204
  Transmission Date: 20210419
  Serious: Yes (Hospitalization, Other)
  Sender: FDA-Public Use
  Company Number: PS-TEVA-2021-PS-1876235

PATIENT
  Sex: Female

DRUGS (1)
  1. ABITREXATE [Suspect]
     Active Substance: METHOTREXATE SODIUM
     Dosage: 1 VIAL

REACTIONS (2)
  - Toxicity to various agents [Unknown]
  - Ulcer [Unknown]

NARRATIVE: CASE EVENT DATE: 20210127
